FAERS Safety Report 23468966 (Version 1)
Quarter: 2024Q1

REPORT INFORMATION
  Report Type: Spontaneous
  Country: US (occurrence: US)
  Receive Date: 20240202
  Receipt Date: 20240202
  Transmission Date: 20240410
  Serious: Yes (Hospitalization)
  Sender: FDA-Public Use
  Company Number: US-HIKMA PHARMACEUTICALS-US-H14001-23-63775

PATIENT
  Age: 26 Year
  Sex: Male

DRUGS (9)
  1. BLINATUMOMAB [Suspect]
     Active Substance: BLINATUMOMAB
     Dosage: 28UG/DAY CIV, DAYS 4-21 OF CYCLES 1, 3, 5
     Route: 065
  2. BLINATUMOMAB [Suspect]
     Active Substance: BLINATUMOMAB
     Dosage: 28UG/DAY CIV, DAYS 6-21 OF CYCLE 1
     Route: 065
  3. BLINATUMOMAB [Suspect]
     Active Substance: BLINATUMOMAB
     Indication: Product used for unknown indication
     Dosage: 9UG/DAY CIV DAYS 4-5 OF CYCLE 1
     Route: 065
  4. CYCLOPHOSPHAMIDE [Suspect]
     Active Substance: CYCLOPHOSPHAMIDE
     Indication: Product used for unknown indication
     Dosage: 150MG/M2 OVER 3 HOURS TWICE A DAY ON DAYS 1-3
     Route: 042
  5. DEXAMETHASONE [Suspect]
     Active Substance: DEXAMETHASONE
     Indication: Product used for unknown indication
     Dosage: 20MG DAILY FOR 4 DAYS ON DAYS 1-4 AND DAYS 11-14 (APPROXIMATE)
     Route: 042
  6. INOTUZUMAB OZOGAMICIN [Suspect]
     Active Substance: INOTUZUMAB OZOGAMICIN
     Indication: Acute lymphocytic leukaemia
     Dosage: 0.3 MG/M2 OVER 1 HOUR ON DAYS 2 AND 8 OF CYCLES 1 AND 3 (APPROXIMATE),
     Route: 042
     Dates: start: 20230410
  7. MESNA [Suspect]
     Active Substance: MESNA
     Indication: Product used for unknown indication
     Dosage: 300MG/M2 DAILY OVER 24 HOURS FOR 3 DAYS ON DAYS 1-3
     Route: 042
  8. RITUXIMAB [Suspect]
     Active Substance: RITUXIMAB
     Indication: Product used for unknown indication
     Dosage: 375MG/M2 ON DAY 2 AND DAY 8 OF CYCLES 1 AND 3
     Route: 042
  9. VINCRISTINE SULFATE [Suspect]
     Active Substance: VINCRISTINE SULFATE
     Indication: Product used for unknown indication
     Dosage: 2MG DAY 1 AND DAY 8 (APPROXIMATE)
     Route: 042

REACTIONS (1)
  - Nausea [Recovered/Resolved]

NARRATIVE: CASE EVENT DATE: 20230604
